FAERS Safety Report 5218666-5 (Version None)
Quarter: 2007Q1

REPORT INFORMATION
  Report Type: 
  Country: None (occurrence: None)
  Receive Date: 20070122
  Receipt Date: 20061110
  Transmission Date: 20070707
  Serious: Yes (Other)
  Sender: FDA-Public Use
  Company Number: 2006SP006161

PATIENT
  Sex: Male

DRUGS (1)
  1. LORATADINE [Suspect]
     Dosage: 10 MG;QD;PO
     Route: 048

REACTIONS (1)
  - PLATELET COUNT DECREASED [None]
